FAERS Safety Report 11226797 (Version 1)
Quarter: 2015Q2

REPORT INFORMATION
  Report Type: Spontaneous
  Country: US (occurrence: US)
  Receive Date: 20150630
  Receipt Date: 20150630
  Transmission Date: 20150821
  Serious: No
  Sender: FDA-Public Use
  Company Number: US-SA-2015SA055132

PATIENT
  Age: 41 Year
  Sex: Female
  Weight: 86 kg

DRUGS (12)
  1. CELEXA [Concomitant]
     Active Substance: CITALOPRAM HYDROBROMIDE
  2. AUBAGIO [Suspect]
     Active Substance: TERIFLUNOMIDE
     Route: 048
     Dates: start: 20150403, end: 20150406
  3. ASA [Concomitant]
     Active Substance: ASPIRIN
  4. TEA [Concomitant]
     Active Substance: TEA LEAF
  5. VITAMIN B [Concomitant]
     Active Substance: VITAMIN B
  6. VITAMIN D3 [Concomitant]
     Active Substance: CHOLECALCIFEROL
  7. TURMERIC [Concomitant]
     Active Substance: TURMERIC
  8. KRILL OIL [Concomitant]
     Active Substance: DIETARY SUPPLEMENT
  9. ACETYLCARNITINE [Concomitant]
     Active Substance: ACETYLCARNITINE
  10. NUVIGIL [Concomitant]
     Active Substance: ARMODAFINIL
  11. MONOLAURIN [Concomitant]
  12. VAGIFEM [Concomitant]
     Active Substance: ESTRADIOL

REACTIONS (3)
  - Feeling cold [Recovering/Resolving]
  - Hypoaesthesia [Recovering/Resolving]
  - Burning sensation [Recovering/Resolving]

NARRATIVE: CASE EVENT DATE: 20150406
